FAERS Safety Report 8577556-0 (Version None)
Quarter: 2012Q3

REPORT INFORMATION
  Report Type: 
  Country: None (occurrence: None)
  Receive Date: 20120807
  Receipt Date: 20120731
  Transmission Date: 20120928
  Serious: No
  Sender: FDA-Public Use
  Company Number: US-B.I. PHARMACEUTICALS,INC./RIDGEFIELD-2012-BP-17294BP

PATIENT
  Sex: Female
  Weight: 71 kg

DRUGS (5)
  1. RALOXIFENE HYDROCHLORIDE [Concomitant]
     Indication: BONE DISORDER
     Dates: start: 20020101
  2. CITALOPRAM HYDROBROMIDE [Concomitant]
     Indication: ANXIETY
     Dates: start: 20020101
  3. CITALOPRAM HYDROBROMIDE [Concomitant]
     Indication: DEPRESSION
  4. SPIRIVA [Suspect]
     Indication: CHRONIC OBSTRUCTIVE PULMONARY DISEASE
     Dosage: 18 MCG
     Route: 055
     Dates: start: 20111201
  5. SPIRIVA [Suspect]
     Dosage: 18 MCG
     Route: 048
     Dates: start: 20120731, end: 20120731

REACTIONS (1)
  - INCORRECT ROUTE OF DRUG ADMINISTRATION [None]
